FAERS Safety Report 7966406-9 (Version None)
Quarter: 2011Q4

REPORT INFORMATION
  Report Type: 
  Country: None (occurrence: None)
  Receive Date: 20111208
  Receipt Date: 20111204
  Transmission Date: 20120403
  Serious: Yes (Other)
  Sender: FDA-Public Use
  Company Number: US-ABBOTT-11P-163-0881322-00

PATIENT
  Age: 31 Year
  Sex: Female

DRUGS (2)
  1. MULTI-VITAMINS [Concomitant]
     Indication: PREGNANCY
  2. HUMIRA [Suspect]
     Indication: PSORIATIC ARTHROPATHY
     Dates: start: 20100701, end: 20110101

REACTIONS (3)
  - PLACENTA PRAEVIA [None]
  - PREGNANCY [None]
  - MATERNAL EXPOSURE DURING PREGNANCY [None]
